FAERS Safety Report 12269370 (Version 4)
Quarter: 2016Q3

REPORT INFORMATION
  Report Type: Spontaneous
  Country: US (occurrence: US)
  Receive Date: 20160414
  Receipt Date: 20160801
  Transmission Date: 20161109
  Serious: Yes (Hospitalization, Other)
  Sender: FDA-Public Use
  Company Number: US-PFIZER INC-2016206004

PATIENT
  Age: 74 Year
  Sex: Female
  Weight: 45.36 kg

DRUGS (2)
  1. XELJANZ [Suspect]
     Active Substance: TOFACITINIB CITRATE
     Indication: RHEUMATOID ARTHRITIS
     Dosage: 5 MG, 2X/DAY
     Route: 048
     Dates: start: 201511
  2. PROLIA [Concomitant]
     Active Substance: DENOSUMAB
     Dosage: UNK

REACTIONS (8)
  - Gingival erythema [Not Recovered/Not Resolved]
  - Swelling face [Recovered/Resolved]
  - Impaired healing [Recovered/Resolved]
  - Pyrexia [Recovered/Resolved]
  - Tooth abscess [Not Recovered/Not Resolved]
  - Tooth fracture [Recovered/Resolved]
  - Feeling hot [Recovered/Resolved]
  - Immune system disorder [Unknown]

NARRATIVE: CASE EVENT DATE: 201603
